FAERS Safety Report 20063942 (Version 5)
Quarter: 2022Q2

REPORT INFORMATION
  Report Type: Report from Study
  Country: PT (occurrence: PT)
  Receive Date: 20211112
  Receipt Date: 20220517
  Transmission Date: 20220721
  Serious: Yes (Other)
  Sender: FDA-Public Use
  Company Number: PT-ABBVIE-21K-130-4153738-00

PATIENT
  Age: 64 Year
  Sex: Female

DRUGS (14)
  1. CARBIDOPA\LEVODOPA [Suspect]
     Active Substance: CARBIDOPA\LEVODOPA
     Indication: Parkinson^s disease
     Dosage: 20 MG PLUS 5 MG?MORN:14 PLUS 5CC;MAINT:5.4CC/H;EXTRA:2CC
     Route: 050
     Dates: start: 20210827, end: 2021
  2. CARBIDOPA\LEVODOPA [Suspect]
     Active Substance: CARBIDOPA\LEVODOPA
     Dosage: 20 MG PLUS 5 MG?MORN:6.3CC;MAINT:2.3CC/H;EXTRA:3CC
     Route: 050
     Dates: start: 20210917, end: 20211030
  3. CARBIDOPA\LEVODOPA [Suspect]
     Active Substance: CARBIDOPA\LEVODOPA
     Dosage: 20 MG PLUS 5 MG?UNKNOWN
     Route: 050
     Dates: start: 20211030, end: 202111
  4. CARBIDOPA\LEVODOPA [Suspect]
     Active Substance: CARBIDOPA\LEVODOPA
     Dosage: 20 MG PLUS 5 MG?MORNI:4,7CC/H;MAINTEN:0,7CC/H;EXTRA:2CC
     Route: 050
     Dates: start: 20211105, end: 20211105
  5. CARBIDOPA\LEVODOPA [Suspect]
     Active Substance: CARBIDOPA\LEVODOPA
     Dosage: 20 MG + 5 MG?MORNIN:6,3CC/H;MAINTEN:1,1CC/H;EXTRA:3CC
     Route: 050
     Dates: start: 20211107, end: 202111
  6. CARBIDOPA\LEVODOPA [Suspect]
     Active Substance: CARBIDOPA\LEVODOPA
     Dosage: 20 MG + 5 MG?MORNIN:4.3CC/H;MAINT:0.9CC/H;EXTRA:3CC
     Route: 050
     Dates: start: 202111, end: 20211117
  7. CARBIDOPA\LEVODOPA [Suspect]
     Active Substance: CARBIDOPA\LEVODOPA
     Dosage: 20 MG + 5 MG
     Route: 050
     Dates: start: 2021, end: 20211206
  8. OPICAPONE [Concomitant]
     Active Substance: OPICAPONE
     Indication: Parkinson^s disease
     Dates: start: 20211106, end: 202111
  9. OPICAPONE [Concomitant]
     Active Substance: OPICAPONE
     Dates: start: 20211106
  10. MIDAZOLAM [Concomitant]
     Active Substance: MIDAZOLAM
     Indication: Product used for unknown indication
     Dosage: IN SOS
     Dates: start: 2021
  11. MORPHINE [Concomitant]
     Active Substance: MORPHINE
     Indication: Product used for unknown indication
     Dosage: IN SOS
     Dates: start: 2021
  12. LEVOMEPROMAZINE [Concomitant]
     Active Substance: LEVOMEPROMAZINE
     Indication: Product used for unknown indication
     Dates: start: 2021
  13. CLOZAPINE [Concomitant]
     Active Substance: CLOZAPINE
     Indication: Product used for unknown indication
  14. RISPERDAL [Concomitant]
     Active Substance: RISPERIDONE
     Indication: Product used for unknown indication

REACTIONS (13)
  - Urinary tract infection [Recovered/Resolved]
  - Unresponsive to stimuli [Recovered/Resolved]
  - Contusion [Not Recovered/Not Resolved]
  - Aggression [Recovered/Resolved]
  - Inappropriate schedule of product administration [Unknown]
  - C-reactive protein abnormal [Unknown]
  - Mobility decreased [Recovered/Resolved]
  - Hallucinations, mixed [Recovered/Resolved]
  - Gait disturbance [Not Recovered/Not Resolved]
  - Dyskinesia [Recovered/Resolved]
  - Dyskinesia [Recovered/Resolved]
  - Dyskinesia [Not Recovered/Not Resolved]
  - On and off phenomenon [Recovered/Resolved]

NARRATIVE: CASE EVENT DATE: 20211030
